FAERS Safety Report 16812671 (Version 3)
Quarter: 2022Q3

REPORT INFORMATION
  Report Type: Spontaneous
  Country: FR (occurrence: FR)
  Receive Date: 20190916
  Receipt Date: 20220721
  Transmission Date: 20221027
  Serious: Yes (Hospitalization, Other)
  Sender: FDA-Public Use
  Company Number: PHHY2019FR210318

PATIENT
  Age: 33 Year
  Sex: Male
  Weight: 68 kg

DRUGS (9)
  1. ACETAMINOPHEN [Suspect]
     Active Substance: ACETAMINOPHEN
     Indication: Pain
     Dosage: 1 G, PRN (1G*3/D)
     Route: 048
     Dates: start: 20190806
  2. PYRIMETHAMINE\SULFADOXINE [Suspect]
     Active Substance: PYRIMETHAMINE\SULFADOXINE
     Indication: Cerebral toxoplasmosis
     Dosage: 50 MG, QD
     Route: 048
     Dates: start: 20190806
  3. SULFADIAZINE [Suspect]
     Active Substance: SULFADIAZINE
     Indication: Cerebral toxoplasmosis
     Dosage: 12 DOSAGE FORM, QD (3 DOSAGE FORM, QID)
     Route: 048
     Dates: start: 20190806, end: 20190823
  4. SULFADIAZINE [Suspect]
     Active Substance: SULFADIAZINE
     Dosage: 3 DOSAGE FORM, Q6H
     Route: 048
     Dates: start: 20190806, end: 20190823
  5. SULFADIAZINE [Suspect]
     Active Substance: SULFADIAZINE
     Dosage: 8 DOSAGE FORM, QD (2 DOSAGE FORM, QID)
     Route: 048
     Dates: start: 20190823
  6. SULFADIAZINE [Suspect]
     Active Substance: SULFADIAZINE
     Dosage: 2 DOSAGE FORM, Q6H (2 DOSAGE FORM, QID)
     Route: 065
  7. ATARAX [Suspect]
     Active Substance: HYDROXYZINE HYDROCHLORIDE
     Indication: Anxiety
     Dosage: 25 MG, UNK
     Route: 054
     Dates: start: 20190806
  8. ATARAX [Suspect]
     Active Substance: HYDROXYZINE HYDROCHLORIDE
     Indication: Insomnia
     Dosage: UNK
     Route: 065
  9. TRIUMEQ [Suspect]
     Active Substance: ABACAVIR SULFATE\DOLUTEGRAVIR SODIUM\LAMIVUDINE
     Indication: HIV infection
     Dosage: 1 DOSAGE FORM, QD
     Route: 048
     Dates: start: 20190825, end: 20190828

REACTIONS (6)
  - Purpura [Unknown]
  - Immune thrombocytopenia [Unknown]
  - Herpes zoster [Unknown]
  - Neutropenia [Unknown]
  - Thrombocytopenia [Unknown]
  - Leukopenia [Unknown]

NARRATIVE: CASE EVENT DATE: 20190827
